FAERS Safety Report 12322280 (Version 1)
Quarter: 2016Q2

REPORT INFORMATION
  Report Type: Spontaneous
  Country: US (occurrence: US)
  Receive Date: 20160502
  Receipt Date: 20160502
  Transmission Date: 20160815
  Serious: No
  Sender: FDA-Public Use
  Company Number: ADR-2015-01341

PATIENT
  Age: 47 Year
  Sex: Male

DRUGS (2)
  1. CLONAZEPAM. [Suspect]
     Active Substance: CLONAZEPAM
     Route: 048
     Dates: end: 20150703
  2. BACLOFEN. [Suspect]
     Active Substance: BACLOFEN
     Dosage: 749.8 MCG/DAY
     Route: 037

REACTIONS (7)
  - Dysarthria [Recovered/Resolved]
  - Performance status decreased [Recovered/Resolved]
  - Dizziness [Recovered/Resolved]
  - Adverse drug reaction [Recovered/Resolved]
  - Feeling hot [Recovered/Resolved]
  - Hypotension [Recovered/Resolved]
  - Cold sweat [Recovered/Resolved]

NARRATIVE: CASE EVENT DATE: 20150629
